FAERS Safety Report 15300651 (Version 1)
Quarter: 2018Q3

REPORT INFORMATION
  Report Type: Spontaneous
  Country: GB (occurrence: GB)
  Receive Date: 20180821
  Receipt Date: 20180821
  Transmission Date: 20181010
  Serious: Yes (Other)
  Sender: FDA-Public Use
  Company Number: PHHY2018GB073119

PATIENT
  Sex: Male

DRUGS (1)
  1. TRAVOPROST. [Suspect]
     Active Substance: TRAVOPROST
     Indication: OPEN ANGLE GLAUCOMA
     Dosage: UNK
     Route: 047

REACTIONS (2)
  - Hypotony of eye [Recovered/Resolved]
  - Choroidal detachment [Recovered/Resolved]
